FAERS Safety Report 7569278-X (Version None)
Quarter: 2011Q2

REPORT INFORMATION
  Report Type: 
  Country: None (occurrence: None)
  Receive Date: 20110623
  Receipt Date: 20110622
  Transmission Date: 20111010
  Serious: Yes (Death, Life-Threatening, Hospitalization)
  Sender: FDA-Public Use
  Company Number: PHHO2010DE00521

PATIENT
  Sex: Male

DRUGS (4)
  1. MYFORTIC [Suspect]
     Indication: RENAL TRANSPLANT
     Dosage: OPEN LABEL
     Route: 048
     Dates: start: 20090630
  2. PREDNISONE [Suspect]
     Indication: RENAL TRANSPLANT
     Dosage: OPEN LABEL
     Route: 048
  3. CYCLOSPORINE [Suspect]
     Indication: RENAL TRANSPLANT
     Dosage: OPEN LABEL
     Route: 048
     Dates: start: 20090630
  4. NO TREATMENT RECEIVED [Suspect]
     Dosage: NO TREATMENT

REACTIONS (7)
  - TUMOUR LYSIS SYNDROME [None]
  - CANDIDIASIS [None]
  - RESTLESSNESS [None]
  - MULTI-ORGAN FAILURE [None]
  - OEDEMA PERIPHERAL [None]
  - METASTASES TO LIVER [None]
  - BRONCHIAL CARCINOMA [None]
